FAERS Safety Report 6482635-8 (Version None)
Quarter: 2009Q4

REPORT INFORMATION
  Report Type: 
  Country: None (occurrence: None)
  Receive Date: 20091209
  Receipt Date: 20091203
  Transmission Date: 20100525
  Serious: Yes (Other)
  Sender: FDA-Public Use
  Company Number: US-BIOGENIDEC-2008BI034350

PATIENT
  Age: 42 Year
  Sex: Female

DRUGS (2)
  1. AVONEX [Suspect]
     Indication: MULTIPLE SCLEROSIS
     Route: 030
     Dates: start: 19970701, end: 20000101
  2. AVONEX [Suspect]
     Route: 030
     Dates: start: 20081201

REACTIONS (2)
  - NON-HODGKIN'S LYMPHOMA STAGE I [None]
  - RENAL FAILURE ACUTE [None]
